FAERS Safety Report 11711799 (Version 1)
Quarter: 2015Q4

REPORT INFORMATION
  Report Type: Spontaneous
  Country: US (occurrence: US)
  Receive Date: 20151104
  Receipt Date: 20151104
  Transmission Date: 20160304
  Serious: No
  Sender: FDA-Public Use
  Company Number: US-ELI_LILLY_AND_COMPANY-US201103001406

PATIENT
  Age: 68 Year
  Sex: Female

DRUGS (5)
  1. FORTEO [Suspect]
     Active Substance: TERIPARATIDE
     Indication: OSTEOPOROSIS
     Dosage: 20 UG, DAILY (1/D)
     Dates: start: 20110201
  2. ABILIFY [Concomitant]
     Active Substance: ARIPIPRAZOLE
     Dosage: 2 MG, UNK
  3. ANTIDEPRESSANTS [Concomitant]
     Active Substance: UNSPECIFIED INGREDIENT
  4. SODIUM HYALURONATE [Concomitant]
     Active Substance: HYALURONATE SODIUM
     Dosage: UNK, WEEKLY (1/W)
  5. FORTEO [Suspect]
     Active Substance: TERIPARATIDE
     Dosage: 20 UG, QD

REACTIONS (14)
  - Abdominal pain upper [Recovering/Resolving]
  - Arthralgia [Unknown]
  - Muscle spasms [Not Recovered/Not Resolved]
  - Pyrexia [Recovered/Resolved]
  - Hyperhidrosis [Unknown]
  - Sinusitis [Unknown]
  - Movement disorder [Unknown]
  - Musculoskeletal chest pain [Recovered/Resolved]
  - Nasal congestion [Unknown]
  - Neck pain [Recovered/Resolved]
  - Chest pain [Recovered/Resolved]
  - Hypersensitivity [Unknown]
  - Enuresis [Unknown]
  - Tooth repair [Unknown]

NARRATIVE: CASE EVENT DATE: 201102
